FAERS Safety Report 9832587 (Version 1)
Quarter: 2014Q1

REPORT INFORMATION
  Report Type: Spontaneous
  Country: HU (occurrence: HU)
  Receive Date: 20140121
  Receipt Date: 20140121
  Transmission Date: 20141002
  Serious: Yes (Life-Threatening, Hospitalization, Disabling)
  Sender: FDA-Public Use
  Company Number: HU-AMGEN-HUNSP2013091894

PATIENT
  Age: 51 Year
  Sex: Female

DRUGS (3)
  1. ENBREL [Suspect]
     Indication: ANKYLOSING SPONDYLITIS
     Dosage: 50 MG, WEEKLY
     Route: 065
     Dates: start: 20080813, end: 20130410
  2. TOLPERISONE [Concomitant]
     Indication: TORTICOLLIS
     Dosage: 150 MG, 3X/DAY
     Route: 048
     Dates: start: 20121218, end: 20130410
  3. ZALDIAR [Concomitant]
     Indication: TORTICOLLIS
     Dosage: UNK MG, 3X/DAY
     Route: 048
     Dates: start: 20121218, end: 20130410

REACTIONS (3)
  - Disseminated intravascular coagulation [Recovered/Resolved with Sequelae]
  - Peritoneal haemorrhage [Recovered/Resolved with Sequelae]
  - Thrombocytopenia [Recovered/Resolved with Sequelae]
